FAERS Safety Report 22529797 (Version 1)
Quarter: 2023Q2

REPORT INFORMATION
  Report Type: Spontaneous
  Country: CN (occurrence: None)
  Receive Date: 20230607
  Receipt Date: 20230607
  Transmission Date: 20230722
  Serious: Yes (Other)
  Sender: FDA-Public Use
  Company Number: 2023A127594

PATIENT
  Age: 81 Year
  Sex: Male
  Weight: 50 kg

DRUGS (1)
  1. IMFINZI [Suspect]
     Active Substance: DURVALUMAB
     Indication: Non-small cell lung cancer
     Dosage: 500MG / PERIOD
     Route: 042
     Dates: start: 20230117

REACTIONS (1)
  - Pulmonary oedema [Unknown]
